FAERS Safety Report 19690542 (Version 2)
Quarter: 2022Q3

REPORT INFORMATION
  Report Type: Spontaneous
  Country: FR (occurrence: FR)
  Receive Date: 20210812
  Receipt Date: 20220713
  Transmission Date: 20221026
  Serious: Yes (Other)
  Sender: FDA-Public Use
  Company Number: FR-GSKCCFEMEA-CASE-01277484_AE-48070

PATIENT

DRUGS (1)
  1. LAMICTAL [Suspect]
     Active Substance: LAMOTRIGINE
     Indication: Product used for unknown indication
     Dosage: 75 MG, BID , 3 TABLETS MORNING AND EVENING
     Dates: start: 2016

REACTIONS (14)
  - Cervical spinal cord paralysis [Unknown]
  - Fatigue [Unknown]
  - Headache [Unknown]
  - Somnolence [Unknown]
  - Vision blurred [Unknown]
  - Stress [Unknown]
  - Nausea [Unknown]
  - Dry mouth [Unknown]
  - Pruritus [Unknown]
  - Erythema [Unknown]
  - Acne [Unknown]
  - Joint dislocation [Unknown]
  - Dental discomfort [Unknown]
  - Dysgeusia [Unknown]
